FAERS Safety Report 8532868-1 (Version None)
Quarter: 2012Q3

REPORT INFORMATION
  Report Type: 
  Country: None (occurrence: None)
  Receive Date: 20120724
  Receipt Date: 20120713
  Transmission Date: 20120928
  Serious: Yes (Other)
  Sender: FDA-Public Use
  Company Number: US-BAYER-2012-023853

PATIENT
  Age: 40 Year
  Sex: Female
  Weight: 58.957 kg

DRUGS (5)
  1. DROSPIRENONE AND ETHINYL ESTRADIOL [Suspect]
     Indication: CONTRACEPTION
     Dosage: UNK
     Dates: start: 20100401, end: 20101001
  2. YASMIN [Suspect]
     Dosage: UNK
     Dates: start: 20101201, end: 20110201
  3. YASMIN [Suspect]
     Indication: CONTRACEPTION
     Dosage: UNK
     Dates: start: 20020101, end: 20100101
  4. YAZ [Suspect]
     Indication: CONTRACEPTION
     Dosage: UNK
     Dates: start: 20110201, end: 20110401
  5. YASMIN [Suspect]
     Dosage: UNK
     Dates: start: 20110401, end: 20110831

REACTIONS (10)
  - OEDEMA PERIPHERAL [None]
  - DEEP VEIN THROMBOSIS [None]
  - SKIN WARM [None]
  - PAIN [None]
  - GAIT DISTURBANCE [None]
  - PSYCHOLOGICAL TRAUMA [None]
  - DEPRESSION [None]
  - PAIN IN EXTREMITY [None]
  - ANXIETY [None]
  - ANHEDONIA [None]
